FAERS Safety Report 17865695 (Version 1)
Quarter: 2020Q2

REPORT INFORMATION
  Report Type: Spontaneous
  Country: HR (occurrence: HR)
  Receive Date: 20200605
  Receipt Date: 20200605
  Transmission Date: 20200714
  Serious: Yes (Other)
  Sender: FDA-Public Use
  Company Number: HR-TEVA-2020-HR-1244149

PATIENT
  Age: 27 Year
  Sex: Female

DRUGS (1)
  1. RINOLAN [Suspect]
     Active Substance: LORATADINE
     Dosage: 300 MG
     Route: 048
     Dates: start: 20200123, end: 20200123

REACTIONS (3)
  - Suicide attempt [Unknown]
  - Intentional overdose [Unknown]
  - Somnolence [Unknown]

NARRATIVE: CASE EVENT DATE: 20200123
